FAERS Safety Report 7659120-0 (Version None)
Quarter: 2011Q3

REPORT INFORMATION
  Report Type: 
  Country: None (occurrence: None)
  Receive Date: 20110805
  Receipt Date: 20110729
  Transmission Date: 20111222
  Serious: Yes (Other)
  Sender: FDA-Public Use
  Company Number: US-GLAXOSMITHKLINE-A0920445A

PATIENT
  Age: 74 Year
  Sex: Female

DRUGS (5)
  1. DIOVAN [Concomitant]
     Dosage: 320MG PER DAY
     Route: 048
  2. LIPITOR [Concomitant]
     Dosage: 10MG PER DAY
     Route: 048
  3. AMLODIPINE [Concomitant]
     Dosage: 10MG PER DAY
     Route: 048
  4. ADVAIR DISKUS 100/50 [Suspect]
     Indication: PRODUCT USED FOR UNKNOWN INDICATION
     Dosage: 1PUFF TWICE PER DAY
     Route: 055
     Dates: start: 20110301
  5. LABETALOL HCL [Concomitant]
     Dosage: 300MG THREE TIMES PER DAY
     Route: 048

REACTIONS (4)
  - ASTHMA [None]
  - DRUG INEFFECTIVE [None]
  - DRUG ADMINISTRATION ERROR [None]
  - PRODUCT QUALITY ISSUE [None]
